FAERS Safety Report 17096164 (Version 1)
Quarter: 2019Q4

REPORT INFORMATION
  Report Type: Report from Study
  Country: ES (occurrence: ES)
  Receive Date: 20191202
  Receipt Date: 20191202
  Transmission Date: 20200122
  Serious: Yes (Hospitalization, Other)
  Sender: FDA-Public Use
  Company Number: ES-BRISTOL-MYERS SQUIBB COMPANY-BMS-2019-111310

PATIENT
  Sex: Male

DRUGS (2)
  1. TILSOTOLIMOD. [Concomitant]
     Active Substance: TILSOTOLIMOD
     Indication: MALIGNANT MELANOMA
     Dosage: UNK
     Route: 026
     Dates: start: 20190508, end: 20190829
  2. IPILIMUMAB [Suspect]
     Active Substance: IPILIMUMAB
     Indication: MALIGNANT MELANOMA
     Dosage: 3 MILLIGRAM/KILOGRAM PER 3 WEEKS
     Route: 042
     Dates: start: 20190516, end: 20190829

REACTIONS (4)
  - Lymphocytic hypophysitis [Recovering/Resolving]
  - Secondary adrenocortical insufficiency [Recovering/Resolving]
  - Secondary hypogonadism [Recovering/Resolving]
  - Secondary hypothyroidism [Recovering/Resolving]

NARRATIVE: CASE EVENT DATE: 20190710
